FAERS Safety Report 9132310 (Version 1)
Quarter: 2013Q1

REPORT INFORMATION
  Report Type: Spontaneous
  Country: US (occurrence: US)
  Receive Date: 20130120
  Receipt Date: 20130120
  Transmission Date: 20140127
  Serious: No
  Sender: FDA-Public Use
  Company Number: US-ALLERGAN-1213407US

PATIENT
  Sex: Female

DRUGS (3)
  1. BOTOX COSMETIC [Suspect]
     Indication: PRODUCT USED FOR UNKNOWN INDICATION
     Dosage: 23 UNITS, SINGLE
     Dates: start: 20120703, end: 20120703
  2. BOTOX COSMETIC [Suspect]
     Dosage: 38 UNITS, SINGLE
     Dates: start: 20120423, end: 20120423
  3. DYSPORT                            /01136801/ [Concomitant]
     Indication: PRODUCT USED FOR UNKNOWN INDICATION

REACTIONS (1)
  - Diplopia [Unknown]
